FAERS Safety Report 4950670-4 (Version None)
Quarter: 2006Q1

REPORT INFORMATION
  Report Type: 
  Country: None (occurrence: None)
  Receive Date: 20060321
  Receipt Date: 20060321
  Transmission Date: 20060701
  Serious: Yes (Other)
  Sender: FDA-Public Use
  Company Number: None

PATIENT
  Age: 67 Year
  Sex: Male
  Weight: 121.6 kg

DRUGS (9)
  1. ATORVASTATIN CALCIUM [Suspect]
  2. COUMADIN [Concomitant]
  3. CHOLESTYRAMINE [Concomitant]
  4. POTASSIUM CHLORIDE [Concomitant]
  5. RAMIPRIL [Concomitant]
  6. TERAZOSIN HCL [Concomitant]
  7. OMEPRAZOLE [Concomitant]
  8. ATENOLOL [Concomitant]
  9. FELODIPINE [Concomitant]

REACTIONS (1)
  - MYALGIA [None]
